FAERS Safety Report 19677470 (Version 2)
Quarter: 2022Q1

REPORT INFORMATION
  Report Type: Spontaneous
  Country: US (occurrence: None)
  Receive Date: 20210809
  Receipt Date: 20220324
  Transmission Date: 20220423
  Serious: Yes (Death, Other)
  Sender: FDA-Public Use
  Company Number: 2021A668604

PATIENT
  Age: 78 Year
  Sex: Male

DRUGS (4)
  1. PRILOSEC [Suspect]
     Active Substance: OMEPRAZOLE MAGNESIUM
     Indication: Gastrooesophageal reflux disease
     Route: 048
     Dates: start: 2009, end: 2018
  2. PRILOSEC OTC [Suspect]
     Active Substance: OMEPRAZOLE MAGNESIUM
     Indication: Gastrooesophageal reflux disease
     Route: 048
     Dates: start: 2009, end: 2018
  3. ASPIRIN [Concomitant]
     Active Substance: ASPIRIN
     Indication: Anticoagulant therapy
  4. TUMS [Concomitant]
     Active Substance: CALCIUM CARBONATE
     Dosage: 3-4 TABLETS A DAY
     Dates: start: 2000, end: 2019

REACTIONS (4)
  - Cardiogenic shock [Fatal]
  - Cardiomyopathy [Fatal]
  - Chronic kidney disease [Fatal]
  - End stage renal disease [Unknown]

NARRATIVE: CASE EVENT DATE: 20180101
